FAERS Safety Report 14515116 (Version 2)
Quarter: 2019Q1

REPORT INFORMATION
  Report Type: Spontaneous
  Country: US (occurrence: US)
  Receive Date: 20180210
  Receipt Date: 20190219
  Transmission Date: 20190417
  Serious: Yes (Other)
  Sender: FDA-Public Use
  Company Number: US-BRISTOL-MYERS SQUIBB COMPANY-BMS-2018-010842

PATIENT
  Age: 64 Year
  Sex: Female
  Weight: 56.24 kg

DRUGS (3)
  1. ELIQUIS [Suspect]
     Active Substance: APIXABAN
     Indication: CEREBROVASCULAR ACCIDENT PROPHYLAXIS
     Dosage: 5 MG, BID
     Route: 048
  2. VENLAFAXINE XR [Suspect]
     Active Substance: VENLAFAXINE HYDROCHLORIDE
     Indication: DEPRESSION
     Dosage: 150 MG, QD (MORNING)
     Route: 048
     Dates: start: 201804
  3. LASIX [Concomitant]
     Active Substance: FUROSEMIDE
     Indication: CARDIAC FAILURE CONGESTIVE
     Dosage: 320 MG, UNK
     Route: 065

REACTIONS (11)
  - Atrial fibrillation [Unknown]
  - Facial bones fracture [Unknown]
  - Contusion [Unknown]
  - Eye contusion [Unknown]
  - Post procedural haemorrhage [Unknown]
  - Fall [Unknown]
  - Atrial flutter [Unknown]
  - Syncope [Unknown]
  - Chest discomfort [Unknown]
  - Tooth disorder [Unknown]
  - Chromaturia [Unknown]

NARRATIVE: CASE EVENT DATE: 201805
